FAERS Safety Report 8345317-3 (Version None)
Quarter: 2012Q2

REPORT INFORMATION
  Report Type: 
  Country: None (occurrence: None)
  Receive Date: 20120504
  Receipt Date: 20120427
  Transmission Date: 20120825
  Serious: Yes (Other)
  Sender: FDA-Public Use
  Company Number: AU-1190641

PATIENT
  Age: 38 Year
  Sex: Female
  Weight: 80 kg

DRUGS (3)
  1. FLUOROMETHOLONE [Concomitant]
  2. SYSTANE EYE DROPS (SYSTANE ULTRA) [Suspect]
     Indication: POSTOPERATIVE CARE
     Dosage: (2 DROPS UP TO 4 TIMES A DAY OPHTHALMIC)
     Route: 047
     Dates: start: 20120113
  3. SYSTANE EYE DROPS (SYSTANE ULTRA) [Suspect]
     Indication: DRY EYE
     Dosage: (2 DROPS UP TO 4 TIMES A DAY OPHTHALMIC)
     Route: 047
     Dates: start: 20120113

REACTIONS (7)
  - EYE MOVEMENT DISORDER [None]
  - EYE PAIN [None]
  - CORNEAL PERFORATION [None]
  - FOREIGN BODY SENSATION IN EYES [None]
  - EYE IRRITATION [None]
  - NAUSEA [None]
  - LACRIMATION INCREASED [None]
